FAERS Safety Report 5235940-7 (Version None)
Quarter: 2007Q1

REPORT INFORMATION
  Report Type: 
  Country: None (occurrence: None)
  Receive Date: 20061208
  Receipt Date: 20060109
  Transmission Date: 20070707
  Serious: Yes (Other)
  Sender: FDA-Public Use
  Company Number: 2006UW00387

PATIENT
  Age: 77 Year
  Sex: Female
  Weight: 91.625 kg

DRUGS (10)
  1. CRESTOR [Suspect]
     Indication: BLOOD CHOLESTEROL INCREASED
     Dosage: 10 MG PO
     Route: 048
     Dates: start: 20030101, end: 20051201
  2. ZETIA [Concomitant]
  3. SYNTHROID [Concomitant]
  4. ATENOLOL [Concomitant]
  5. CALCIUM [Concomitant]
  6. ISOSORBIDE [Concomitant]
  7. FOLTX [Concomitant]
  8. POTASSIUM ACETATE [Concomitant]
  9. ASPIRIN [Concomitant]
  10. PENTOXIFYLLINE [Concomitant]

REACTIONS (4)
  - FEELING ABNORMAL [None]
  - ILL-DEFINED DISORDER [None]
  - INCREASED APPETITE [None]
  - MUSCLE SPASMS [None]
